FAERS Safety Report 5590646-X (Version None)
Quarter: 2008Q1

REPORT INFORMATION
  Report Type: 
  Country: None (occurrence: None)
  Receive Date: 20080114
  Receipt Date: 20080109
  Transmission Date: 20080703
  Serious: Yes (Other)
  Sender: FDA-Public Use
  Company Number: US-MERCK-0801USA01716

PATIENT
  Age: 74 Year
  Sex: Female

DRUGS (4)
  1. VYTORIN [Suspect]
     Indication: BLOOD CHOLESTEROL INCREASED
     Route: 048
     Dates: start: 20060101, end: 20070101
  2. VYTORIN [Suspect]
     Route: 048
     Dates: start: 20070101, end: 20070101
  3. TOPROL-XL [Concomitant]
     Route: 065
  4. [THERAPY UNSPECIFIED] [Concomitant]
     Route: 065

REACTIONS (3)
  - DEMENTIA [None]
  - FATIGUE [None]
  - MUSCULAR WEAKNESS [None]
